FAERS Safety Report 17977316 (Version 1)
Quarter: 2020Q3

REPORT INFORMATION
  Report Type: Spontaneous
  Country: CA (occurrence: CA)
  Receive Date: 20200702
  Receipt Date: 20200702
  Transmission Date: 20201103
  Serious: Yes (Hospitalization)
  Sender: FDA-Public Use
  Company Number: CA-BAXTER-2020BAX013486

PATIENT
  Age: 35 Year
  Sex: Male

DRUGS (1)
  1. IFEX [Suspect]
     Active Substance: IFOSFAMIDE
     Indication: SARCOMA METASTATIC
     Dosage: DOSAGE FORM: POWDER FOR SOLUTION INTRAVENOUS
     Route: 041

REACTIONS (4)
  - White blood cell count increased [Unknown]
  - Blood albumin abnormal [Unknown]
  - Neutrophil count increased [Unknown]
  - Neurotoxicity [Unknown]
